FAERS Safety Report 8322597-1 (Version None)
Quarter: 2012Q2

REPORT INFORMATION
  Report Type: 
  Country: None (occurrence: None)
  Receive Date: 20120426
  Receipt Date: 20120405
  Transmission Date: 20120825
  Serious: Yes (Other)
  Sender: FDA-Public Use
  Company Number: 001188850A

PATIENT
  Age: 30 Year
  Sex: Female

DRUGS (1)
  1. PROACTIV 30 DAY KIT [Suspect]
     Indication: ACNE
     Dosage: ONE DOSE DERMAL
     Route: 061
     Dates: start: 20120329

REACTIONS (3)
  - PHARYNGEAL OEDEMA [None]
  - SWELLING FACE [None]
  - URTICARIA [None]
